FAERS Safety Report 7117098-2 (Version None)
Quarter: 2010Q4

REPORT INFORMATION
  Report Type: 
  Country: None (occurrence: None)
  Receive Date: 20101122
  Receipt Date: 20101112
  Transmission Date: 20110411
  Serious: No
  Sender: FDA-Public Use
  Company Number: US-PFIZER INC-2010149182

PATIENT
  Age: 11 Year
  Sex: Male

DRUGS (1)
  1. GEODON [Suspect]
     Dosage: 120 MG, UNK

REACTIONS (1)
  - ENURESIS [None]
